FAERS Safety Report 6393260-1 (Version None)
Quarter: 2009Q4

REPORT INFORMATION
  Report Type: 
  Country: None (occurrence: None)
  Receive Date: 20091008
  Receipt Date: 20090926
  Transmission Date: 20100525
  Serious: Yes (Other)
  Sender: FDA-Public Use
  Company Number: US-JNJFOC-20091001425

PATIENT
  Sex: Female
  Weight: 48.99 kg

DRUGS (11)
  1. CHILDREN'S TYLENOL LIQUID VERY BERRY STRAWBERRY [Suspect]
  2. CHILDREN'S TYLENOL LIQUID VERY BERRY STRAWBERRY [Suspect]
     Dosage: FOR FEVER GREATER THAN 100.4
  3. CHILDREN'S TYLENOL LIQUID VERY BERRY STRAWBERRY [Suspect]
     Indication: PYREXIA
  4. CIPRO [Concomitant]
  5. CIPRO [Concomitant]
  6. CIPRO [Concomitant]
     Indication: URINARY TRACT INFECTION
  7. IBUPROFEN [Concomitant]
  8. AZITHROMYCIN [Concomitant]
     Indication: URINARY TRACT INFECTION
     Dosage: 200MG/5ML FOR 5 DAYS
  9. BACTRIM DS [Concomitant]
     Indication: URINARY TRACT INFECTION
  10. MACROBID [Concomitant]
  11. MACROBID [Concomitant]
     Indication: URINARY TRACT INFECTION

REACTIONS (5)
  - ASTHENIA [None]
  - CONFUSIONAL STATE [None]
  - DECUBITUS ULCER [None]
  - FATIGUE [None]
  - TRANSMISSION OF AN INFECTIOUS AGENT VIA A MEDICINAL PRODUCT [None]
